FAERS Safety Report 15182629 (Version 1)
Quarter: 2018Q3

REPORT INFORMATION
  Report Type: Spontaneous
  Country: US (occurrence: US)
  Receive Date: 20180624
  Receipt Date: 20180624
  Transmission Date: 20181010
  Serious: No
  Sender: FDA-Public Use
  Company Number: None

PATIENT
  Age: 24 Year
  Sex: Female
  Weight: 74.25 kg

DRUGS (5)
  1. AMNESTEEM [Suspect]
     Active Substance: ISOTRETINOIN
     Indication: ACNE CYSTIC
     Route: 048
     Dates: start: 20180501, end: 20180530
  2. VITAMIN D [Concomitant]
     Active Substance: CHOLECALCIFEROL
  3. CITALOPRAM [Concomitant]
     Active Substance: CITALOPRAM HYDROBROMIDE
  4. VITAMIN B12 [Concomitant]
     Active Substance: CYANOCOBALAMIN
  5. LSOTRETINOIN [Concomitant]

REACTIONS (4)
  - Arthralgia [None]
  - Myalgia [None]
  - Bedridden [None]
  - Product substitution issue [None]

NARRATIVE: CASE EVENT DATE: 20180505
